FAERS Safety Report 4923281-4 (Version None)
Quarter: 2006Q1

REPORT INFORMATION
  Report Type: 
  Country: None (occurrence: None)
  Receive Date: 20060227
  Receipt Date: 20060214
  Transmission Date: 20060701
  Serious: Yes (Death, Life-Threatening, Other)
  Sender: FDA-Public Use
  Company Number: US-JNJFOC-20060203429

PATIENT
  Sex: Male
  Weight: 104.01 kg

DRUGS (14)
  1. ABCIXIMAB [Suspect]
     Indication: DRUG USE FOR UNKNOWN INDICATION
     Route: 042
  2. ENOXAPARIN SODIUM [Suspect]
     Indication: ACUTE CORONARY SYNDROME
     Route: 058
  3. ASPIRIN [Concomitant]
  4. PLAVIX [Concomitant]
  5. LOVENOX [Concomitant]
  6. LASIX [Concomitant]
  7. BENADRYL [Concomitant]
  8. VASOPRESSIN [Concomitant]
  9. RISPERIDONE [Concomitant]
  10. PARLODEL [Concomitant]
  11. TENORMIN [Concomitant]
  12. SEDACORON [Concomitant]
  13. EUTHYROX [Concomitant]
  14. SPIRIVA [Concomitant]

REACTIONS (4)
  - CEREBRAL INFARCTION [None]
  - MULTI-ORGAN FAILURE [None]
  - RENAL FAILURE ACUTE [None]
  - VENTRICULAR TACHYCARDIA [None]
